FAERS Safety Report 5472468-3 (Version None)
Quarter: 2007Q3

REPORT INFORMATION
  Report Type: 
  Country: None (occurrence: None)
  Receive Date: 20070820
  Receipt Date: 20070504
  Transmission Date: 20080115
  Serious: No
  Sender: FDA-Public Use
  Company Number: WAES 0705USA01100

PATIENT
  Age: 82 Year
  Sex: Female

DRUGS (9)
  1. JANUVIA [Suspect]
     Indication: TYPE 2 DIABETES MELLITUS
     Dosage: 100 MG/DAILY/PO
     Route: 048
     Dates: start: 20070301
  2. ACTONEL [Concomitant]
  3. SINGULAIR [Concomitant]
  4. TRICOR [Concomitant]
  5. THERAPY UNSPECIFIED [Concomitant]
  6. DIGOXIN [Concomitant]
  7. DILTIAZEM HYDROCHLORIDE [Concomitant]
  8. DIURETIC (UNSPECIFIED) [Concomitant]
  9. MELOXICAM [Concomitant]

REACTIONS (2)
  - HYPERHIDROSIS [None]
  - WEIGHT DECREASED [None]
